FAERS Safety Report 5113169-0 (Version None)
Quarter: 2006Q3

REPORT INFORMATION
  Report Type: 
  Country: None (occurrence: None)
  Receive Date: 20060922
  Receipt Date: 20060913
  Transmission Date: 20061208
  Serious: Yes (Hospitalization)
  Sender: FDA-Public Use
  Company Number: US-ABBOTT-06P-163-0344092-00

PATIENT
  Sex: Female
  Weight: 72.64 kg

DRUGS (4)
  1. DEPAKOTE ER [Suspect]
     Indication: BIPOLAR I DISORDER
     Route: 048
     Dates: start: 20060523, end: 20060906
  2. DEPAKOTE ER [Suspect]
     Route: 048
     Dates: start: 20060906
  3. OLANZAPINE [Concomitant]
     Indication: AFFECTIVE DISORDER
     Route: 048
     Dates: start: 20060801
  4. CITALOPRAM HYDROBROMIDE [Concomitant]
     Indication: AFFECTIVE DISORDER
     Route: 048
     Dates: start: 20060801

REACTIONS (3)
  - ALCOHOLISM [None]
  - DRUG ABUSER [None]
  - OEDEMA [None]
